FAERS Safety Report 26037768 (Version 1)
Quarter: 2025Q4

REPORT INFORMATION
  Report Type: Spontaneous
  Country: US (occurrence: US)
  Receive Date: 20251112
  Receipt Date: 20251112
  Transmission Date: 20260118
  Serious: Yes (Other)
  Sender: BRACCO
  Company Number: US-BRACCO-2024US08272

PATIENT
  Age: 50 Year
  Sex: Male

DRUGS (3)
  1. LUMASON [Suspect]
     Active Substance: SULFUR HEXAFLUORIDE
     Indication: Echocardiogram
     Dosage: UNK
     Route: 042
     Dates: start: 20241227, end: 20241227
  2. LUMASON [Suspect]
     Active Substance: SULFUR HEXAFLUORIDE
     Indication: Echocardiogram
     Dosage: UNK
     Route: 042
     Dates: start: 20241227, end: 20241227
  3. LUMASON [Suspect]
     Active Substance: SULFUR HEXAFLUORIDE
     Indication: Echocardiogram
     Dosage: UNK
     Route: 042
     Dates: start: 20241227, end: 20241227

REACTIONS (7)
  - Blood pressure decreased [Unknown]
  - Heart rate decreased [Unknown]
  - Hot flush [Unknown]
  - Feeling hot [Unknown]
  - Hyperhidrosis [Unknown]
  - Pallor [Unknown]
  - Speech disorder [Unknown]

NARRATIVE: CASE EVENT DATE: 20241227
